FAERS Safety Report 9517344 (Version 1)
Quarter: 2013Q3

REPORT INFORMATION
  Report Type: Report from Study
  Country: US (occurrence: US)
  Receive Date: 20130911
  Receipt Date: 20130911
  Transmission Date: 20140515
  Serious: Yes (Death)
  Sender: FDA-Public Use
  Company Number: US-ROCHE-1273682

PATIENT
  Sex: Male

DRUGS (5)
  1. XELODA [Suspect]
     Indication: COLON CANCER
     Dosage: 3 TABLETS IN MORNING; 14 DAYS ON, 7 DAYS OFF
     Route: 048
     Dates: start: 201103, end: 2013
  2. XELODA [Suspect]
     Dosage: 4 TABLETS IN EVENING; 14 DAYS ON, 7 DAYS OFF
     Route: 048
     Dates: start: 201103, end: 2013
  3. AMBIEN [Concomitant]
     Route: 048
  4. LISINOPRIL [Concomitant]
     Route: 048
  5. NORVASC [Concomitant]
     Route: 048

REACTIONS (1)
  - Death [Fatal]
